FAERS Safety Report 9913576 (Version 2)
Quarter: 2014Q1

REPORT INFORMATION
  Report Type: Spontaneous
  Country: US (occurrence: US)
  Receive Date: 20140220
  Receipt Date: 20140307
  Transmission Date: 20141002
  Serious: No
  Sender: FDA-Public Use
  Company Number: US-009507513-1402USA003754

PATIENT
  Sex: Female

DRUGS (3)
  1. ASMANEX TWISTHALER [Suspect]
     Dosage: 1 PUFF, ONCE DAILY
     Route: 055
     Dates: start: 201401
  2. PROAIR (ALBUTEROL SULFATE) [Concomitant]
     Dosage: UNK
  3. BISOPROLOL FUMARATE (+) HYDROCHLOROTHIAZIDE [Concomitant]
     Dosage: UNK

REACTIONS (3)
  - Adverse event [Unknown]
  - Drug dose omission [Unknown]
  - Product quality issue [Unknown]
